FAERS Safety Report 6662272-2 (Version None)
Quarter: 2010Q1

REPORT INFORMATION
  Report Type: 
  Country: None (occurrence: None)
  Receive Date: 20100331
  Receipt Date: 20100323
  Transmission Date: 20100710
  Serious: Yes (Hospitalization)
  Sender: FDA-Public Use
  Company Number: JP-ABBOTT-07P-087-0370384-00

PATIENT
  Sex: Male

DRUGS (18)
  1. NORVIR [Suspect]
     Indication: HIV INFECTION
     Route: 048
     Dates: start: 20050330, end: 20080215
  2. NORVIR [Suspect]
     Route: 048
     Dates: start: 20080216
  3. ATAZANAVIR SULFATE [Suspect]
     Indication: HIV INFECTION
     Route: 048
     Dates: start: 20050330, end: 20080215
  4. LAMIVUDINE [Suspect]
     Indication: HIV INFECTION
     Route: 048
     Dates: start: 20050330, end: 20080215
  5. TENOFOVIR [Suspect]
     Indication: HIV INFECTION
     Route: 048
     Dates: start: 20050330, end: 20080215
  6. PEG-INTRON [Suspect]
     Indication: HEPATITIS C
     Route: 058
     Dates: start: 20051004, end: 20070313
  7. RURIOCTOCOG ALFA [Concomitant]
     Indication: HAEMOPHILIA
     Route: 042
     Dates: start: 20050330
  8. RIBAVIRIN [Concomitant]
     Indication: HEPATITIS C
     Route: 048
     Dates: start: 20051210, end: 20060320
  9. RABEPRAZOLE SODIUM [Concomitant]
     Indication: REFLUX OESOPHAGITIS
     Route: 048
     Dates: start: 20050716, end: 20051016
  10. RABEPRAZOLE SODIUM [Concomitant]
     Route: 048
     Dates: start: 20051017, end: 20051210
  11. RABEPRAZOLE SODIUM [Concomitant]
     Route: 048
     Dates: start: 20080216
  12. LAFUTIDINE [Concomitant]
     Indication: REFLUX OESOPHAGITIS
     Route: 048
     Dates: start: 20051210, end: 20080215
  13. FOSAMPRENAVIR [Concomitant]
     Indication: HIV INFECTION
     Route: 048
     Dates: start: 20080215
  14. EMTRICITABINE W/TENOFOVIR [Concomitant]
     Indication: HIV INFECTION
     Route: 048
     Dates: start: 20080215
  15. RECOMBINATE [Concomitant]
     Indication: DRUG USE FOR UNKNOWN INDICATION
     Dosage: (FACTOR VIII FRACTION)
     Dates: end: 20070720
  16. ADVATE [Concomitant]
     Indication: DRUG USE FOR UNKNOWN INDICATION
     Dates: start: 20070721
  17. LAFUTIDINE [Concomitant]
     Indication: DRUG USE FOR UNKNOWN INDICATION
  18. RABEPRAZOLE SODIUM [Concomitant]
     Indication: DRUG USE FOR UNKNOWN INDICATION

REACTIONS (6)
  - BLOOD BILIRUBIN INCREASED [None]
  - LIPOATROPHY [None]
  - MELAENA [None]
  - PLATELET COUNT DECREASED [None]
  - VARICES OESOPHAGEAL [None]
  - WHITE BLOOD CELL COUNT DECREASED [None]
